FAERS Safety Report 7954904-3 (Version None)
Quarter: 2011Q4

REPORT INFORMATION
  Report Type: 
  Country: None (occurrence: None)
  Receive Date: 20111202
  Receipt Date: 20111123
  Transmission Date: 20120403
  Serious: Yes (Other)
  Sender: FDA-Public Use
  Company Number: US-PURDUE-USA-2011-0078668

PATIENT
  Sex: Female

DRUGS (1)
  1. OXYCONTIN [Suspect]
     Indication: MULTIPLE SCLEROSIS
     Dosage: 60 MG, BID
     Dates: start: 20030101

REACTIONS (3)
  - NEOPLASM MALIGNANT [None]
  - ARTHRITIS [None]
  - FIBROMYALGIA [None]
